FAERS Safety Report 9271231 (Version 1)
Quarter: 2013Q2

REPORT INFORMATION
  Report Type: Spontaneous
  Country: NZ (occurrence: NZ)
  Receive Date: 20130506
  Receipt Date: 20130506
  Transmission Date: 20140414
  Serious: Yes (Hospitalization)
  Sender: FDA-Public Use
  Company Number: NZ-ELI_LILLY_AND_COMPANY-NZ201304008663

PATIENT
  Age: 56 Year
  Sex: Female

DRUGS (1)
  1. ZYPREXA RELPREVV [Suspect]
     Dosage: 405 MG, 2/M
     Dates: start: 20130417

REACTIONS (4)
  - Pallor [Unknown]
  - Sedation [Unknown]
  - Dysarthria [Unknown]
  - Fatigue [Unknown]
